FAERS Safety Report 4509656-6 (Version None)
Quarter: 2004Q4

REPORT INFORMATION
  Report Type: 
  Country: None (occurrence: None)
  Receive Date: 20041124
  Receipt Date: 20041119
  Transmission Date: 20050328
  Serious: Yes (Disabling, Other)
  Sender: FDA-Public Use
  Company Number: 200421506GDDC

PATIENT
  Age: 10 Year
  Sex: Male

DRUGS (2)
  1. DESMOPRESSIN ACETATE [Suspect]
     Indication: ENURESIS
     Route: 048
     Dates: start: 20040923, end: 20041020
  2. OXYBUTYNIN [Concomitant]
     Indication: HYPERTONIC BLADDER

REACTIONS (3)
  - DISTURBANCE IN ATTENTION [None]
  - RESTLESSNESS [None]
  - SCREAMING [None]
